FAERS Safety Report 8590847-2 (Version None)
Quarter: 2012Q3

REPORT INFORMATION
  Report Type: 
  Country: None (occurrence: None)
  Receive Date: 20120813
  Receipt Date: 20120806
  Transmission Date: 20120928
  Serious: Yes (Other)
  Sender: FDA-Public Use
  Company Number: US-ABBOTT-12P-163-0965800-00

PATIENT
  Sex: Female

DRUGS (16)
  1. CLARITIN [Concomitant]
     Indication: PRODUCT USED FOR UNKNOWN INDICATION
     Dosage: 10 MG DAILY
  2. LEXAPRO [Concomitant]
     Indication: PRODUCT USED FOR UNKNOWN INDICATION
     Dosage: IN THE MORNING
  3. NAPROXEN [Concomitant]
     Indication: BACK PAIN
  4. FLEXERIL [Concomitant]
     Indication: PRODUCT USED FOR UNKNOWN INDICATION
  5. VITAMIN D [Concomitant]
     Indication: PRODUCT USED FOR UNKNOWN INDICATION
  6. CYMBALTA [Concomitant]
     Indication: PRODUCT USED FOR UNKNOWN INDICATION
     Dosage: 90 MG THROUGH THE DAY
  7. BENICAR HCT [Concomitant]
     Indication: BLOOD PRESSURE
     Dosage: 320/25 MG
  8. HUMIRA [Suspect]
     Indication: BEHCET'S SYNDROME
  9. LIPITOR [Concomitant]
     Indication: PRODUCT USED FOR UNKNOWN INDICATION
     Dosage: AT BEDTIME
  10. TRAZODONE HYDROCHLORIDE [Concomitant]
     Indication: PRODUCT USED FOR UNKNOWN INDICATION
  11. HUMIRA [Suspect]
     Indication: MUCOSAL ULCERATION
  12. NEURONTIN [Concomitant]
     Indication: FIBROMYALGIA
  13. JANUMET [Concomitant]
     Indication: DIABETES MELLITUS
     Dosage: 50/100 MG
  14. MIRAPEX [Concomitant]
     Indication: RESTLESS LEGS SYNDROME
  15. AMBIEN [Concomitant]
     Indication: INSOMNIA
     Dosage: AT BEDTIME
  16. TRICOR [Concomitant]
     Indication: PRODUCT USED FOR UNKNOWN INDICATION
     Dosage: AT BEDTIME

REACTIONS (10)
  - CARPAL TUNNEL SYNDROME [None]
  - INJECTION SITE EXTRAVASATION [None]
  - INCORRECT DOSE ADMINISTERED [None]
  - APHONIA [None]
  - INJECTION SITE PAIN [None]
  - COUGH [None]
  - POST PROCEDURAL INFECTION [None]
  - PAIN IN EXTREMITY [None]
  - ARTHRALGIA [None]
  - INJECTION SITE MASS [None]
